FAERS Safety Report 20036273 (Version 1)
Quarter: 2021Q4

REPORT INFORMATION
  Report Type: Spontaneous
  Country: CA (occurrence: CA)
  Receive Date: 20211105
  Receipt Date: 20211105
  Transmission Date: 20220303
  Serious: Yes (Other)
  Sender: FDA-Public Use
  Company Number: CA-BAYER-2021-210132

PATIENT

DRUGS (4)
  1. EYLEA [Suspect]
     Active Substance: AFLIBERCEPT
     Indication: Product used for unknown indication
     Dosage: RECEIVED A TOTAL OF 8 EYLEA
  2. EYLEA [Suspect]
     Active Substance: AFLIBERCEPT
     Dosage: LAST EYLEA INJECTION PRIOR TO EVENT, OU
     Dates: start: 20210715, end: 20210715
  3. POVIDONE-IODINE [Concomitant]
     Active Substance: POVIDONE-IODINE
     Indication: Product used for unknown indication
  4. CHLORHEXIDINE [Concomitant]
     Active Substance: CHLORHEXIDINE
     Indication: Product used for unknown indication

REACTIONS (4)
  - Uveitis [Recovered/Resolved]
  - Eye inflammation [Recovered/Resolved]
  - Eye infection [Recovered/Resolved]
  - Vision blurred [Recovered/Resolved]
